FAERS Safety Report 24214854 (Version 1)
Quarter: 2024Q3

REPORT INFORMATION
  Report Type: Spontaneous
  Country: FR (occurrence: FR)
  Receive Date: 20240815
  Receipt Date: 20240815
  Transmission Date: 20241017
  Serious: Yes (Death)
  Sender: TEVA
  Company Number: FR-TEVA-VS-3233192

PATIENT
  Age: 53 Year
  Sex: Female

DRUGS (2)
  1. TRAMADOL [Suspect]
     Active Substance: TRAMADOL\TRAMADOL HYDROCHLORIDE
     Indication: Product used for unknown indication
     Route: 065
  2. SUFENTANIL [Suspect]
     Active Substance: SUFENTANIL
     Indication: Product used for unknown indication
     Route: 065

REACTIONS (3)
  - Overdose [Fatal]
  - Toxicity to various agents [Fatal]
  - Drug abuse [Fatal]
